FAERS Safety Report 26092723 (Version 1)
Quarter: 2025Q4

REPORT INFORMATION
  Report Type: Report from Study
  Country: IN (occurrence: IN)
  Receive Date: 20251126
  Receipt Date: 20251126
  Transmission Date: 20260117
  Serious: Yes (Hospitalization, Other)
  Sender: ALEXION PHARMACEUTICALS
  Company Number: IN-AstraZeneca-CH-00996729A

PATIENT
  Age: 47 Year
  Sex: Male
  Weight: 75 kg

DRUGS (1)
  1. DURVALUMAB [Suspect]
     Active Substance: DURVALUMAB
     Indication: Immunochemotherapy

REACTIONS (7)
  - Weight decreased [Recovering/Resolving]
  - Gastric ulcer [Recovering/Resolving]
  - Haematochezia [Recovering/Resolving]
  - Haemoglobin decreased [Recovering/Resolving]
  - Decreased appetite [Recovering/Resolving]
  - Nausea [Recovering/Resolving]
  - Vomiting [Recovering/Resolving]
